FAERS Safety Report 15854341 (Version 7)
Quarter: 2019Q2

REPORT INFORMATION
  Report Type: Spontaneous
  Country: DK (occurrence: DK)
  Receive Date: 20190122
  Receipt Date: 20190528
  Transmission Date: 20190711
  Serious: Yes (Other)
  Sender: FDA-Public Use
  Company Number: DK-JNJFOC-20190104689

PATIENT
  Age: 19 Year
  Sex: Male

DRUGS (5)
  1. VITAMIN D3 [Concomitant]
     Active Substance: CHOLECALCIFEROL
     Indication: BONE PAIN
     Route: 065
  2. VERMOX [Suspect]
     Active Substance: MEBENDAZOLE
     Indication: ASCARIASIS
     Route: 048
     Dates: start: 20190102, end: 20190104
  3. VERMOX [Suspect]
     Active Substance: MEBENDAZOLE
     Indication: NEMATODIASIS
     Route: 048
     Dates: start: 20190102, end: 20190104
  4. LACTOSE [Suspect]
     Active Substance: LACTOSE
     Indication: NEMATODIASIS
     Route: 048
     Dates: start: 20190102, end: 20190104
  5. LACTOSE [Suspect]
     Active Substance: LACTOSE
     Indication: ASCARIASIS
     Route: 048
     Dates: start: 20190102, end: 20190104

REACTIONS (16)
  - Hyperhidrosis [Not Recovered/Not Resolved]
  - Reaction to excipient [Unknown]
  - Abdominal pain upper [Not Recovered/Not Resolved]
  - Headache [Not Recovered/Not Resolved]
  - Fall [Unknown]
  - Hepatic failure [Recovered/Resolved with Sequelae]
  - Oral pain [Unknown]
  - Oesophageal pain [Not Recovered/Not Resolved]
  - Dizziness [Not Recovered/Not Resolved]
  - Oropharyngeal pain [Unknown]
  - Vision blurred [Unknown]
  - Vomiting [Not Recovered/Not Resolved]
  - Diarrhoea [Not Recovered/Not Resolved]
  - Somnolence [Not Recovered/Not Resolved]
  - Abdominal pain [Recovered/Resolved]
  - Hot flush [Recovered/Resolved]

NARRATIVE: CASE EVENT DATE: 201901
